FAERS Safety Report 6269276-2 (Version None)
Quarter: 2009Q3

REPORT INFORMATION
  Report Type: 
  Country: None (occurrence: None)
  Receive Date: 20090713
  Receipt Date: 20090702
  Transmission Date: 20100115
  Serious: Yes (Death)
  Sender: FDA-Public Use
  Company Number: GXKR2009DE07608

PATIENT

DRUGS (2)
  1. PREDNISONE [Suspect]
     Indication: RHEUMATOID ARTHRITIS
  2. CYCLOPHOSPHAMIDE [Suspect]
     Indication: RHEUMATIC FEVER

REACTIONS (2)
  - HERPES SIMPLEX [None]
  - PNEUMONIA HERPES VIRAL [None]
